FAERS Safety Report 21236107 (Version 1)
Quarter: 2022Q3

REPORT INFORMATION
  Report Type: Spontaneous
  Country: GB (occurrence: None)
  Receive Date: 20220822
  Receipt Date: 20220822
  Transmission Date: 20221027
  Serious: Yes (Other)
  Sender: FDA-Public Use
  Company Number: GB-ROCHE-3163011

PATIENT

DRUGS (1)
  1. AVASTIN [Suspect]
     Active Substance: BEVACIZUMAB
     Indication: Product used for unknown indication
     Dosage: THERAPY STARTED IN 2019/20
     Route: 065

REACTIONS (3)
  - Cervix cancer metastatic [Unknown]
  - Cervix cancer metastatic [Unknown]
  - Cervix cancer metastatic [Unknown]
